FAERS Safety Report 23652517 (Version 3)
Quarter: 2024Q2

REPORT INFORMATION
  Report Type: Spontaneous
  Country: US (occurrence: US)
  Receive Date: 20240320
  Receipt Date: 20240403
  Transmission Date: 20240716
  Serious: Yes (Other)
  Sender: FDA-Public Use
  Company Number: US-AUROBINDO-AUR-APL-2024-012392

PATIENT
  Age: 77 Year
  Sex: Female
  Weight: 77.11 kg

DRUGS (2)
  1. EZETIMIBE [Suspect]
     Active Substance: EZETIMIBE
     Indication: Product used for unknown indication
     Dosage: 1 DOSAGE FORM, ONCE A DAY
     Route: 065
     Dates: start: 20230912
  2. METOPROLOL [Concomitant]
     Active Substance: METOPROLOL
     Indication: Hypertension
     Dosage: UNK
     Route: 065

REACTIONS (8)
  - Congenital osteodystrophy [Unknown]
  - Renal impairment [Recovering/Resolving]
  - Dysstasia [Unknown]
  - Muscular weakness [Recovering/Resolving]
  - Gait disturbance [Unknown]
  - Wheelchair user [Unknown]
  - Miosis [Unknown]
  - Adverse event [Recovering/Resolving]
